FAERS Safety Report 8835411 (Version 2)
Quarter: 2012Q4

REPORT INFORMATION
  Report Type: 
  Country: US (occurrence: US)
  Receive Date: 20121011
  Receipt Date: 20121211
  Transmission Date: 20130627
  Serious: Yes (Hospitalization)
  Sender: FDA-Public Use
  Company Number: US-MPIJNJ-2012-06867

PATIENT
  Age: 17 Year
  Sex: Male
  Weight: 45.7 kg

DRUGS (8)
  1. VELCADE [Suspect]
     Indication: ACUTE MYELOID LEUKAEMIA
     Dosage: 1.3 mg/m2, Cyclic
     Route: 042
     Dates: start: 20120617, end: 20121003
  2. VELCADE [Suspect]
     Dosage: 1.3 UNK, UNK
     Route: 040
     Dates: start: 20120617, end: 20120926
  3. CYTARABINE [Suspect]
     Indication: ACUTE MYELOID LEUKAEMIA
     Dosage: UNK UNK, Cyclic
     Route: 037
     Dates: start: 20120617, end: 20120929
  4. CYTARABINE [Suspect]
     Dosage: UNK UNK, Cyclic
     Route: 042
     Dates: start: 20120617, end: 20120925
  5. MITOXANTRONE HYDROCHLORIDE [Suspect]
     Indication: ACUTE MYELOID LEUKAEMIA
     Dosage: UNK UNK, Cyclic
     Route: 042
     Dates: end: 20121001
  6. DAUNORUBICIN HYDROCHLORIDE [Suspect]
     Indication: ACUTE MYELOID LEUKAEMIA
     Dosage: UNK UNK, Cyclic
     Route: 042
     Dates: start: 20120617
  7. DAUNORUBICIN HYDROCHLORIDE [Suspect]
     Dosage: UNK
  8. ETOPOSIDE [Suspect]
     Indication: ACUTE MYELOID LEUKAEMIA
     Dosage: UNK UNK, Cyclic
     Route: 042
     Dates: start: 20120617

REACTIONS (2)
  - Colitis [Not Recovered/Not Resolved]
  - Pancreatitis [Not Recovered/Not Resolved]
